FAERS Safety Report 7711588-7 (Version None)
Quarter: 2011Q3

REPORT INFORMATION
  Report Type: 
  Country: None (occurrence: None)
  Receive Date: 20110826
  Receipt Date: 20110602
  Transmission Date: 20111222
  Serious: No
  Sender: FDA-Public Use
  Company Number: US-BRISTOL-MYERS SQUIBB COMPANY-15717952

PATIENT
  Age: 5 Decade
  Sex: Female

DRUGS (7)
  1. TOPROL-XL [Concomitant]
  2. TEKTURNA [Concomitant]
  3. ZOCOR [Concomitant]
  4. VITAMIN D [Concomitant]
  5. PREDNISONE [Concomitant]
  6. ONGLYZA [Suspect]
     Dosage: TOTAL DURATION 3 OR 4 MONTHS
  7. GLIPIZIDE [Concomitant]

REACTIONS (1)
  - DRUG INEFFECTIVE [None]
